FAERS Safety Report 9052720 (Version 2)
Quarter: 2013Q2

REPORT INFORMATION
  Report Type: Report from Study
  Country: US (occurrence: US)
  Receive Date: 20130207
  Receipt Date: 20130528
  Transmission Date: 20140414
  Serious: Yes (Hospitalization)
  Sender: FDA-Public Use
  Company Number: US-SHIRE-ALL1-2013-00571

PATIENT
  Age: 14 Year
  Sex: Male
  Weight: 19 kg

DRUGS (4)
  1. IDURSULFASE [Suspect]
     Indication: MUCOPOLYSACCHARIDOSIS II
     Dosage: 18 MG, 1X/WEEK
     Route: 041
     Dates: start: 20100125
  2. IDURSULFASE [Suspect]
     Dosage: 12 MG, 1X/WEEK
     Route: 041
     Dates: start: 20061102
  3. IDURSULFASE [Suspect]
     Dosage: 9.4 MG, 1X/WEEK
     Route: 041
     Dates: start: 20031010
  4. OTHER ANTIINFECTIVES [Concomitant]
     Indication: INFECTION
     Dosage: 3.0 GTT, 2X/DAY:BID
     Route: 065
     Dates: start: 20070115

REACTIONS (1)
  - Pneumonia [Recovered/Resolved]
